FAERS Safety Report 4407836-1 (Version None)
Quarter: 2004Q3

REPORT INFORMATION
  Report Type: 
  Country: None (occurrence: None)
  Receive Date: 20040726
  Receipt Date: 20040712
  Transmission Date: 20050211
  Serious: Yes (Hospitalization)
  Sender: FDA-Public Use
  Company Number: GB-GLAXOSMITHKLINE-B0338772A

PATIENT
  Age: 84 Year
  Sex: Female

DRUGS (12)
  1. DIGOXIN [Suspect]
     Indication: ATRIAL FIBRILLATION
     Dosage: 250MCG PER DAY
     Route: 048
     Dates: end: 20040519
  2. TRIMETHOPRIM [Suspect]
     Indication: URINARY TRACT INFECTION
     Dosage: 200MG TWICE PER DAY
     Route: 048
     Dates: start: 20040513, end: 20040517
  3. DOXAZOSIN [Concomitant]
     Indication: HYPERTENSION
     Route: 065
  4. LANSOPRAZOLE [Concomitant]
     Indication: ULCER
     Dosage: 30MG PER DAY
     Route: 048
  5. METFORMIN HCL [Concomitant]
     Dosage: 500MG PER DAY
     Route: 048
  6. FRUSEMIDE [Concomitant]
     Dosage: 20MG PER DAY
     Route: 048
  7. CO-CODAMOL [Concomitant]
     Route: 065
  8. OESTRADIOL [Concomitant]
     Route: 061
  9. ZESTORETIC [Concomitant]
     Route: 065
  10. AMOXIL [Concomitant]
     Dosage: 250MG PER DAY
     Route: 065
     Dates: start: 20040517
  11. DOMPERIDONE [Concomitant]
     Indication: VOMITING
     Dosage: 10MG PER DAY
     Route: 065
     Dates: start: 20040517
  12. LISINOPRIL [Concomitant]
     Dosage: 10MG PER DAY
     Route: 048

REACTIONS (4)
  - BLOOD CREATININE INCREASED [None]
  - DEHYDRATION [None]
  - FEELING ABNORMAL [None]
  - THERAPEUTIC AGENT TOXICITY [None]
